FAERS Safety Report 7043808-9 (Version None)
Quarter: 2010Q4

REPORT INFORMATION
  Report Type: 
  Country: None (occurrence: None)
  Receive Date: 20101012
  Receipt Date: 20101012
  Transmission Date: 20110411
  Serious: No
  Sender: FDA-Public Use
  Company Number: None

PATIENT
  Age: 37 Year
  Sex: Female
  Weight: 49.8957 kg

DRUGS (1)
  1. ABILIFY [Suspect]
     Dosage: PO RECENTLY STARTED
     Route: 048

REACTIONS (4)
  - DYSTONIA [None]
  - MUSCLE TIGHTNESS [None]
  - TONGUE DISORDER [None]
  - TREMOR [None]
